FAERS Safety Report 13257178 (Version 2)
Quarter: 2017Q1

REPORT INFORMATION
  Report Type: Spontaneous
  Country: PR (occurrence: PR)
  Receive Date: 20170221
  Receipt Date: 20170309
  Transmission Date: 20170428
  Serious: Yes (Hospitalization)
  Sender: FDA-Public Use
  Company Number: PR-IMPAX LABORATORIES, INC-2017-IPXL-00340

PATIENT
  Age: 45 Year
  Sex: Female

DRUGS (1)
  1. METFORMIN HYDROCHLORIDE ER [Suspect]
     Active Substance: METFORMIN HYDROCHLORIDE
     Indication: TYPE 2 DIABETES MELLITUS
     Dosage: UNK
     Route: 065

REACTIONS (2)
  - Hyperglycaemia [Unknown]
  - Pulmonary tuberculosis [Recovered/Resolved]
